FAERS Safety Report 13839086 (Version 1)
Quarter: 2017Q3

REPORT INFORMATION
  Report Type: Spontaneous
  Country: US (occurrence: US)
  Receive Date: 20170805
  Receipt Date: 20170805
  Transmission Date: 20171127
  Serious: Yes (Life-Threatening, Hospitalization)
  Sender: FDA-Public Use
  Company Number: None

PATIENT
  Age: 81 Year
  Sex: Male
  Weight: 69.85 kg

DRUGS (1)
  1. AVELUMAB [Suspect]
     Active Substance: AVELUMAB
     Indication: NEUROENDOCRINE CARCINOMA OF THE SKIN
     Dosage: FREQUENCY - OTHER
     Route: 042
     Dates: start: 20170419, end: 20170601

REACTIONS (11)
  - Diplopia [None]
  - Dysarthria [None]
  - Confusional state [None]
  - Balance disorder [None]
  - Multiple organ dysfunction syndrome [None]
  - Dizziness [None]
  - Vision blurred [None]
  - Toxicity to various agents [None]
  - Immune-mediated adverse reaction [None]
  - Polyneuropathy [None]
  - Speech disorder [None]

NARRATIVE: CASE EVENT DATE: 20170612
